FAERS Safety Report 11008392 (Version 3)
Quarter: 2015Q4

REPORT INFORMATION
  Report Type: Report from Study
  Country: US (occurrence: US)
  Receive Date: 20150410
  Receipt Date: 20151013
  Transmission Date: 20160304
  Serious: Yes (Hospitalization)
  Sender: FDA-Public Use
  Company Number: US-BIOGENIDEC-2015BI042423

PATIENT
  Sex: Female

DRUGS (1)
  1. PLEGRIDY [Suspect]
     Active Substance: PEGINTERFERON BETA-1A
     Indication: MULTIPLE SCLEROSIS
     Dates: start: 20150304

REACTIONS (8)
  - Fall [Recovered/Resolved]
  - Injection site erythema [Not Recovered/Not Resolved]
  - Injection site pain [Not Recovered/Not Resolved]
  - Back disorder [Not Recovered/Not Resolved]
  - Malaise [Not Recovered/Not Resolved]
  - Knee arthroplasty [Recovered/Resolved]
  - Injection site haemorrhage [Recovered/Resolved]
  - Injection site warmth [Not Recovered/Not Resolved]
